FAERS Safety Report 10916503 (Version 2)
Quarter: 2015Q3

REPORT INFORMATION
  Report Type: Spontaneous
  Country: FR (occurrence: FR)
  Receive Date: 20150311
  Receipt Date: 20150923
  Transmission Date: 20151125
  Serious: Yes (Hospitalization)
  Sender: FDA-Public Use
  Company Number: 2015-0731-SPO

PATIENT
  Age: 53 Year
  Sex: Female

DRUGS (2)
  1. ANDROCUR [Concomitant]
     Active Substance: CYPROTERONE ACETATE
     Route: 048
     Dates: start: 1982, end: 2011
  2. ESTROGEL [Suspect]
     Active Substance: ESTRADIOL

REACTIONS (4)
  - Diarrhoea [Unknown]
  - Loss of libido [Unknown]
  - Meningioma [Unknown]
  - Vomiting [Unknown]
